FAERS Safety Report 9083594 (Version 1)
Quarter: 2013Q1

REPORT INFORMATION
  Report Type: Report from Study
  Country: US (occurrence: US)
  Receive Date: 20130129
  Receipt Date: 20130129
  Transmission Date: 20140127
  Serious: No
  Sender: FDA-Public Use
  Company Number: US-ABBOTT-12P-163-0948271-00

PATIENT
  Age: 65 Year
  Sex: Female

DRUGS (16)
  1. HUMIRA 40 MG/0.8 ML PEN [Suspect]
     Indication: RHEUMATOID ARTHRITIS
     Dates: start: 20120612
  2. LORTAB [Concomitant]
     Indication: PAIN
     Dosage: 15MG = 2 X 7.5MG TABS AS NEEDED
  3. VESICARE [Concomitant]
     Indication: PRODUCT USED FOR UNKNOWN INDICATION
  4. LISINOPRIL/HCTZ [Concomitant]
     Indication: HYPERTENSION
     Dosage: 20/12.5MG - 1 TAB DAILY
  5. SIMVASTATIN [Concomitant]
     Indication: BLOOD CHOLESTEROL INCREASED
  6. GABAPENTIN [Concomitant]
     Indication: BACK PAIN
  7. OMEPRAZOLE [Concomitant]
     Indication: GASTROOESOPHAGEAL REFLUX DISEASE
  8. AMLODIPINE [Concomitant]
     Indication: HYPERTENSION
  9. TRAMADOL [Concomitant]
     Indication: PAIN
     Dosage: 1-2 TABLETS AS NEEDED
  10. GENERIC ZOLOFT [Concomitant]
     Indication: DEPRESSION
  11. EVOXAC [Concomitant]
     Indication: DRY MOUTH
  12. FLEXERIL [Concomitant]
     Indication: PRODUCT USED FOR UNKNOWN INDICATION
  13. LANTUS [Concomitant]
     Indication: DIABETES MELLITUS
     Dosage: AT BEDTIME
     Route: 058
  14. HUMALOG [Concomitant]
     Indication: DIABETES MELLITUS
     Dosage: BEFORE MEALS DAILY
  15. LIDODERM PATCH [Concomitant]
     Indication: PAIN
  16. VOLTAREN [Concomitant]
     Indication: PAIN

REACTIONS (2)
  - Injection site pain [Not Recovered/Not Resolved]
  - Pain [Not Recovered/Not Resolved]
